FAERS Safety Report 5424599-1 (Version None)
Quarter: 2007Q3

REPORT INFORMATION
  Report Type: 
  Country: None (occurrence: None)
  Receive Date: 20070824
  Receipt Date: 20070813
  Transmission Date: 20080115
  Serious: Yes (Hospitalization)
  Sender: FDA-Public Use
  Company Number: CN-ABBOTT-07P-035-0377748-00

PATIENT
  Age: 65 Year
  Sex: Female

DRUGS (1)
  1. KLACID [Suspect]
     Indication: UPPER RESPIRATORY TRACT INFECTION
     Route: 048
     Dates: start: 20070808, end: 20070808

REACTIONS (1)
  - INTESTINAL OBSTRUCTION [None]
